FAERS Safety Report 4879606-1 (Version None)
Quarter: 2006Q1

REPORT INFORMATION
  Report Type: 
  Country: None (occurrence: None)
  Receive Date: 20060113
  Receipt Date: 20060103
  Transmission Date: 20060701
  Serious: Yes (Hospitalization)
  Sender: FDA-Public Use
  Company Number: FR-AVENTIS-200610099EU

PATIENT
  Age: 28 Year
  Sex: Female

DRUGS (2)
  1. FLUDEX [Suspect]
     Indication: ESSENTIAL HYPERTENSION
     Route: 048
     Dates: start: 20051126, end: 20051128
  2. AMLOR [Suspect]
     Route: 048
     Dates: start: 20051126, end: 20051128

REACTIONS (1)
  - ANGIONEUROTIC OEDEMA [None]
